FAERS Safety Report 6258834-7 (Version None)
Quarter: 2009Q3

REPORT INFORMATION
  Report Type: 
  Country: None (occurrence: None)
  Receive Date: 20090707
  Receipt Date: 20090624
  Transmission Date: 20100115
  Serious: Yes (Death, Life-Threatening, Hospitalization)
  Sender: FDA-Public Use
  Company Number: AU-BRISTOL-MYERS SQUIBB COMPANY-14669816

PATIENT
  Age: 73 Year
  Sex: Male
  Weight: 70 kg

DRUGS (9)
  1. BLINDED: BRIVANIB ALANINATE [Suspect]
     Indication: COLORECTAL CANCER METASTATIC
     Dosage: INTERRUPTED ON 16JUN09.
     Route: 048
     Dates: start: 20090422, end: 20090616
  2. CETUXIMAB [Suspect]
     Indication: COLORECTAL CANCER METASTATIC
     Dosage: INTERRUPTED ON 09JUN09.
     Route: 042
     Dates: start: 20090422, end: 20090609
  3. BLINDED: PLACEBO [Suspect]
     Indication: COLORECTAL CANCER METASTATIC
  4. KETAMINE HCL [Concomitant]
     Indication: PAIN
     Dates: start: 20090501
  5. METOCLOPRAMIDE [Concomitant]
     Indication: NAUSEA
  6. CARDIZEM [Concomitant]
     Indication: HYPERTENSION
  7. DEXAMETHASONE [Concomitant]
  8. MORPHINE [Concomitant]
     Indication: PAIN
     Dates: start: 20090501
  9. FENTANYL [Concomitant]
     Indication: PAIN
     Dates: start: 20090619

REACTIONS (6)
  - DEHYDRATION [None]
  - HYPERBILIRUBINAEMIA [None]
  - HYPOALBUMINAEMIA [None]
  - PNEUMONIA [None]
  - STAPHYLOCOCCAL BACTERAEMIA [None]
  - THROMBOCYTOPENIA [None]
